FAERS Safety Report 6538544-9 (Version None)
Quarter: 2010Q1

REPORT INFORMATION
  Report Type: 
  Country: None (occurrence: None)
  Receive Date: 20100113
  Receipt Date: 20100113
  Transmission Date: 20100710
  Serious: Yes (Other)
  Sender: FDA-Public Use
  Company Number: None

PATIENT
  Sex: Female
  Weight: 77.3 kg

DRUGS (1)
  1. CALCIUM W/ MAG, ZINC AND VIT D-3 [Suspect]
     Indication: SUPPLEMENTATION THERAPY
     Dosage: 2TABLETS/DAY 6-7 DAYS A WEEK ORAL
     Route: 048
     Dates: start: 20080901, end: 20091202

REACTIONS (6)
  - ARTHRALGIA [None]
  - HEADACHE [None]
  - MUSCLE SPASMS [None]
  - MUSCULOSKELETAL PAIN [None]
  - PRODUCT ODOUR ABNORMAL [None]
  - TABLET ISSUE [None]
